FAERS Safety Report 11392303 (Version 1)
Quarter: 2015Q3

REPORT INFORMATION
  Report Type: Spontaneous
  Country: GB (occurrence: None)
  Receive Date: 20150814
  Receipt Date: 20150814
  Transmission Date: 20151125
  Serious: Yes (Other)
  Sender: FDA-Public Use
  Company Number: 2015RR-101376

PATIENT
  Age: 51 Year
  Sex: Female
  Weight: 71.2 kg

DRUGS (2)
  1. CLARITHROMYCIN (CLARITHROMYCIN) UNKNOWN [Suspect]
     Active Substance: CLARITHROMYCIN
     Indication: MOUTH ULCERATION
     Route: 048
  2. BENZYDAMINE HYDROCHLORIDE [Concomitant]
     Active Substance: BENZYDAMINE HYDROCHLORIDE
     Indication: MOUTH ULCERATION

REACTIONS (3)
  - Genital pain [None]
  - Dysgeusia [None]
  - Pruritus [None]
